FAERS Safety Report 14416479 (Version 1)
Quarter: 2018Q1

REPORT INFORMATION
  Report Type: Spontaneous
  Country: JP (occurrence: JP)
  Receive Date: 20180122
  Receipt Date: 20180122
  Transmission Date: 20180509
  Serious: Yes (Other)
  Sender: FDA-Public Use
  Company Number: JP-009507513-1801JPN007518

PATIENT
  Age: 57 Year
  Sex: Female

DRUGS (6)
  1. MIGLITOL. [Concomitant]
     Active Substance: MIGLITOL
  2. GLACTIV [Suspect]
     Active Substance: SITAGLIPTIN
     Indication: TYPE 2 DIABETES MELLITUS
     Dosage: 100 MG, QD
     Route: 048
  3. RIFAMPIN. [Concomitant]
     Active Substance: RIFAMPIN
  4. CLARITHROMYCIN. [Concomitant]
     Active Substance: CLARITHROMYCIN
  5. GLICLAZIDE [Concomitant]
     Active Substance: GLICLAZIDE
  6. ETHAMBUTOL HYDROCHLORIDE. [Concomitant]
     Active Substance: ETHAMBUTOL HYDROCHLORIDE

REACTIONS (1)
  - Glucose tolerance impaired [Recovering/Resolving]
